FAERS Safety Report 15795682 (Version 1)
Quarter: 2019Q1

REPORT INFORMATION
  Report Type: Spontaneous
  Country: ES (occurrence: ES)
  Receive Date: 20190107
  Receipt Date: 20190107
  Transmission Date: 20190417
  Serious: Yes (Other)
  Sender: FDA-Public Use
  Company Number: ES-MYLANLABS-2018M1098026

PATIENT
  Age: 74 Year
  Sex: Female
  Weight: 58 kg

DRUGS (11)
  1. LOSARTAN. [Concomitant]
     Active Substance: LOSARTAN
     Indication: ESSENTIAL HYPERTENSION
     Dosage: UNK UNK, QD
     Dates: start: 20090211
  2. BUDESONIDA [Concomitant]
     Indication: RHINITIS ALLERGIC
     Dosage: 100 MICROGRAM, BID
     Dates: start: 20110218
  3. SIMVASTATINA [Concomitant]
     Active Substance: SIMVASTATIN
     Indication: HYPERLIPIDAEMIA
     Dosage: UNK UNK, QD
     Dates: start: 20150325
  4. HIDROCLOROTIAZIDA [Concomitant]
     Active Substance: HYDROCHLOROTHIAZIDE
     Indication: ARRHYTHMIA
     Dosage: 50 MILLIGRAM, QD
     Route: 048
     Dates: start: 20080930
  5. DIGOXINA KERN PHARMA [Concomitant]
     Indication: ARRHYTHMIA
     Dosage: 0.25 MILLIGRAM, Q2D
     Route: 048
     Dates: start: 20081109
  6. BISOPROLOL [Suspect]
     Active Substance: BISOPROLOL
     Indication: ARRHYTHMIA
     Dosage: 1.25 MILLIGRAM, QD
     Route: 048
     Dates: start: 20180427, end: 20180605
  7. ALOPURINOL [Concomitant]
     Active Substance: ALLOPURINOL
     Indication: GOUT
     Dosage: 100 MILLIGRAM, QD
     Dates: start: 20091015
  8. CITALOPRAM [Concomitant]
     Active Substance: CITALOPRAM HYDROBROMIDE
     Indication: PERSISTENT DEPRESSIVE DISORDER
     Dosage: 20 MILLIGRAM, QD
     Route: 048
     Dates: start: 20150807
  9. BROMAZEPAM [Concomitant]
     Active Substance: BROMAZEPAM
     Indication: ANXIETY
     Dosage: UNK UNK, QD
     Route: 048
     Dates: start: 20110316
  10. SINTROM [Concomitant]
     Active Substance: ACENOCOUMAROL
     Indication: ARRHYTHMIA
     Dosage: 2 MILLIGRAM, QD
     Route: 048
     Dates: start: 20081121
  11. SYMBICORT [Concomitant]
     Active Substance: BUDESONIDE\FORMOTEROL FUMARATE DIHYDRATE
     Indication: PRODUCT USED FOR UNKNOWN INDICATION
     Dosage: UNK UNK, BID
     Route: 055
     Dates: start: 20150326

REACTIONS (1)
  - Hypersensitivity vasculitis [Recovered/Resolved]

NARRATIVE: CASE EVENT DATE: 20180603
